FAERS Safety Report 5348522-3 (Version None)
Quarter: 2007Q2

REPORT INFORMATION
  Report Type: 
  Country: None (occurrence: None)
  Receive Date: 20070605
  Receipt Date: 20070523
  Transmission Date: 20071010
  Serious: Yes (Other)
  Sender: FDA-Public Use
  Company Number: B0473246A

PATIENT
  Age: 75 Year
  Sex: Female

DRUGS (6)
  1. PAROXETINE HCL [Suspect]
  2. MEMANTINE HCL [Suspect]
     Indication: DEMENTIA ALZHEIMER'S TYPE
  3. TRAZODONE HCL [Concomitant]
  4. FOLIC ACID [Concomitant]
  5. VITAMIN E [Concomitant]
  6. ATORVASTATIN CALCIUM [Concomitant]

REACTIONS (5)
  - AGITATION [None]
  - BRADYKINESIA [None]
  - DRUG INTERACTION [None]
  - HALLUCINATION, VISUAL [None]
  - MUSCLE RIGIDITY [None]
